FAERS Safety Report 6217465-5 (Version None)
Quarter: 2009Q2

REPORT INFORMATION
  Report Type: 
  Country: None (occurrence: None)
  Receive Date: 20090608
  Receipt Date: 20081106
  Transmission Date: 20091009
  Serious: No
  Sender: FDA-Public Use
  Company Number: A0755420A

PATIENT
  Sex: Female

DRUGS (4)
  1. WELLBUTRIN XL [Suspect]
     Indication: DEPRESSION
     Dosage: 300MG PER DAY
     Route: 048
     Dates: start: 20040101
  2. KLONOPIN [Concomitant]
  3. LAMICTAL [Concomitant]
  4. ULTRAM [Concomitant]

REACTIONS (1)
  - TREMOR [None]
